FAERS Safety Report 5879660-4 (Version None)
Quarter: 2008Q3

REPORT INFORMATION
  Report Type: 
  Country: None (occurrence: None)
  Receive Date: 20080912
  Receipt Date: 20080902
  Transmission Date: 20090109
  Serious: Yes (Death, Hospitalization, Other)
  Sender: FDA-Public Use
  Company Number: ES-ABBOTT-08P-144-0475327-00

PATIENT
  Age: 3 Day
  Sex: Female
  Weight: 4.1 kg

DRUGS (6)
  1. VALPROIC ACID [Suspect]
     Indication: CONVULSION
     Route: 048
  2. VALPROIC ACID [Suspect]
     Route: 065
  3. MEROPENEM [Suspect]
     Indication: DRUG USE FOR UNKNOWN INDICATION
     Route: 065
  4. MEROPENEM [Suspect]
  5. AMIKACIN [Concomitant]
     Indication: DRUG USE FOR UNKNOWN INDICATION
     Dosage: NOT REPORTED
  6. CEPHTAZIDIME [Concomitant]
     Indication: DRUG USE FOR UNKNOWN INDICATION
     Dosage: NOT REPORTED

REACTIONS (2)
  - CONVULSION [None]
  - DRUG INTERACTION [None]
